FAERS Safety Report 9961916 (Version 1)
Quarter: 2014Q1

REPORT INFORMATION
  Report Type: Report from Study
  Country: US (occurrence: US)
  Receive Date: 20140305
  Receipt Date: 20140305
  Transmission Date: 20141002
  Serious: No
  Sender: FDA-Public Use
  Company Number: US-ABBVIE-13P-163-1114524-00

PATIENT
  Age: 36 Year
  Sex: Male

DRUGS (5)
  1. HUMIRA [Suspect]
     Indication: CROHN^S DISEASE
     Dates: start: 20130604, end: 20130604
  2. HUMIRA [Suspect]
     Dates: start: 20130618, end: 20130618
  3. TYLENOL W/CODEINE NO. 3 [Concomitant]
     Indication: ABDOMINAL PAIN UPPER
  4. 6MP [Concomitant]
  5. ONDANSETRON [Concomitant]
     Indication: NAUSEA

REACTIONS (2)
  - Acne [Not Recovered/Not Resolved]
  - Psoriasis [Not Recovered/Not Resolved]
